FAERS Safety Report 11690450 (Version 1)
Quarter: 2015Q4

REPORT INFORMATION
  Report Type: Spontaneous
  Country: US (occurrence: US)
  Receive Date: 20151102
  Receipt Date: 20151102
  Transmission Date: 20160304
  Serious: No
  Sender: FDA-Public Use
  Company Number: US-PFIZER INC-2015357342

PATIENT
  Age: 63 Year
  Sex: Female
  Weight: 74.38 kg

DRUGS (1)
  1. IBRANCE [Suspect]
     Active Substance: PALBOCICLIB
     Indication: BREAST CANCER FEMALE
     Dosage: 100 MG, (1 CAP D1-D21 Q28D)
     Route: 048
     Dates: start: 20150624

REACTIONS (2)
  - Breast cancer female [Unknown]
  - Disease progression [Unknown]

NARRATIVE: CASE EVENT DATE: 20151019
